FAERS Safety Report 21650176 (Version 1)
Quarter: 2022Q4

REPORT INFORMATION
  Report Type: Report from Study
  Country: CO (occurrence: CO)
  Receive Date: 20221128
  Receipt Date: 20221128
  Transmission Date: 20230113
  Serious: Yes (Hospitalization, Other)
  Sender: FDA-Public Use
  Company Number: CO-ASTPRD-AER-2022-026506

PATIENT
  Age: 34 Year
  Sex: Female
  Weight: 43 kg

DRUGS (1)
  1. TACROLIMUS [Suspect]
     Active Substance: TACROLIMUS
     Indication: Renal transplant
     Route: 048
     Dates: start: 20101010

REACTIONS (4)
  - Angina unstable [Recovering/Resolving]
  - Meningitis bacterial [Recovering/Resolving]
  - Hypoacusis [Recovering/Resolving]
  - Vision blurred [Recovering/Resolving]

NARRATIVE: CASE EVENT DATE: 20220301
